FAERS Safety Report 19026592 (Version 1)
Quarter: 2021Q1

REPORT INFORMATION
  Report Type: Spontaneous
  Country: US (occurrence: US)
  Receive Date: 20210318
  Receipt Date: 20210318
  Transmission Date: 20210420
  Serious: No
  Sender: FDA-Public Use
  Company Number: US-SA-2021SA083726

PATIENT
  Age: 79 Year
  Sex: Female

DRUGS (1)
  1. ALLEGRA?D 24 HOUR ALLERGY AND CONGESTION [Suspect]
     Active Substance: FEXOFENADINE HYDROCHLORIDE\PSEUDOEPHEDRINE HYDROCHLORIDE
     Indication: SINUS CONGESTION
     Dosage: UNK
     Dates: start: 20210308, end: 20210309

REACTIONS (3)
  - Adverse drug reaction [Unknown]
  - Insomnia [Unknown]
  - Nervousness [Unknown]

NARRATIVE: CASE EVENT DATE: 20210308
